FAERS Safety Report 11750659 (Version 2)
Quarter: 2015Q4

REPORT INFORMATION
  Report Type: Report from Study
  Country: JP (occurrence: JP)
  Receive Date: 20151118
  Receipt Date: 20151229
  Transmission Date: 20160304
  Serious: Yes (Death, Other)
  Sender: FDA-Public Use
  Company Number: JP-VIFOR (INTERNATIONAL) INC.-VIT-2015-03149

PATIENT
  Age: 49 Year
  Sex: Male

DRUGS (4)
  1. MIRCERA [Suspect]
     Active Substance: METHOXY POLYETHYLENE GLYCOL-EPOETIN BETA
     Indication: NEPHROGENIC ANAEMIA
     Route: 058
     Dates: start: 20140528, end: 20150311
  2. FERROMIA [Concomitant]
     Active Substance: FERROUS CITRATE
     Indication: GLOMERULONEPHRITIS CHRONIC
     Route: 048
     Dates: start: 20130828, end: 20150403
  3. NORVASC [Concomitant]
     Active Substance: AMLODIPINE BESYLATE
     Route: 048
     Dates: start: 20150403
  4. MIRCERA [Suspect]
     Active Substance: METHOXY POLYETHYLENE GLYCOL-EPOETIN BETA
     Route: 058
     Dates: start: 20130724, end: 20130724

REACTIONS (3)
  - Condition aggravated [Fatal]
  - Hypertension [Unknown]
  - Azotaemia [Fatal]

NARRATIVE: CASE EVENT DATE: 20140723
